FAERS Safety Report 15833781 (Version 1)
Quarter: 2019Q1

REPORT INFORMATION
  Report Type: Spontaneous
  Country: GB (occurrence: GB)
  Receive Date: 20190116
  Receipt Date: 20190116
  Transmission Date: 20190417
  Serious: Yes (Other)
  Sender: FDA-Public Use
  Company Number: GB-PFIZER INC-2019016899

PATIENT
  Age: 85 Year
  Sex: Male
  Weight: 88 kg

DRUGS (12)
  1. SHORTEC [Concomitant]
     Active Substance: OXYCODONE HYDROCHLORIDE
     Dosage: 2 DF, 1X/DAY
     Dates: start: 20181122, end: 20181206
  2. AMLODIPINE [Concomitant]
     Active Substance: AMLODIPINE BESYLATE
     Dosage: 1 DF, 1X/DAY
     Dates: start: 20171123
  3. MORPHINE SULFATE. [Concomitant]
     Active Substance: MORPHINE SULFATE
     Dosage: UNK UNK, AS NEEDED (USE EVERY HOUR)
     Dates: start: 20181102, end: 20181109
  4. IBUPROFEN. [Suspect]
     Active Substance: IBUPROFEN
     Dosage: 400 MG, UNK
     Dates: start: 20181211
  5. DECAPEPTYL (ACETATE) [Concomitant]
     Active Substance: TRIPTORELIN ACETATE
     Dosage: 1 DF, EVERY 3 MONTHS
     Dates: start: 20171123
  6. TAMSULOSIN HYDROCHLORIDE. [Concomitant]
     Active Substance: TAMSULOSIN HYDROCHLORIDE
     Dosage: 1 DF, 1X/DAY
     Dates: start: 20171123
  7. SODIUM CHLORIDE. [Concomitant]
     Active Substance: SODIUM CHLORIDE
     Dosage: UNK (AS DIRECTED.)
     Dates: start: 20180816
  8. INSUMAN COMB [Concomitant]
     Active Substance: INSULIN HUMAN
     Dosage: UNK (AS DIRECTED.)
     Dates: start: 20171123
  9. LYNLOR [Concomitant]
     Active Substance: OXYCODONE HYDROCHLORIDE
     Dosage: 2 DF, 1X/DAY
     Dates: start: 20171123
  10. VITAMIN B [Concomitant]
     Active Substance: VITAMIN B
     Dosage: UNK (TAKE 1 OR 2, 3 TIMES PER DAY.)
     Dates: start: 20181102
  11. SPIRIVA [Concomitant]
     Active Substance: TIOTROPIUM BROMIDE MONOHYDRATE
     Dosage: 1 DF, 1X/DAY
     Route: 055
     Dates: start: 20180814
  12. SALBUTAMOL [Concomitant]
     Active Substance: ALBUTEROL
     Dosage: UNK UNK, 4X/DAY (ONE OR TWO PUFFS TO BE INHALED FOUR TIMES A DAY.)
     Route: 055
     Dates: start: 20171123

REACTIONS (1)
  - Gastrointestinal disorder [Unknown]

NARRATIVE: CASE EVENT DATE: 20181211
